FAERS Safety Report 9072174 (Version 1)
Quarter: 2013Q1

REPORT INFORMATION
  Report Type: Report from Study
  Country: US (occurrence: US)
  Receive Date: 20130129
  Receipt Date: 20130129
  Transmission Date: 20140127
  Serious: No
  Sender: FDA-Public Use
  Company Number: US-ABBOTT-12P-163-0922423-00

PATIENT
  Age: 68 None
  Sex: Female
  Weight: 77.18 kg

DRUGS (8)
  1. HUMIRA 40 MG/0.8 ML PEN [Suspect]
     Indication: PSORIATIC ARTHROPATHY
     Dates: start: 20120316
  2. HUMIRA 40 MG/0.8 ML PEN [Suspect]
     Indication: PSORIASIS
  3. MULTIVITAMIN [Concomitant]
     Indication: PRODUCT USED FOR UNKNOWN INDICATION
  4. FISH OIL [Concomitant]
     Indication: BLOOD CHOLESTEROL INCREASED
  5. ZYRTEC [Concomitant]
     Indication: SEASONAL ALLERGY
  6. AMBIEN CR [Concomitant]
     Indication: INSOMNIA
  7. TYLENOL [Concomitant]
     Indication: PAIN
  8. PRILOSEC [Concomitant]
     Indication: GASTRIC DISORDER

REACTIONS (4)
  - Drug ineffective [Not Recovered/Not Resolved]
  - Drug ineffective [Not Recovered/Not Resolved]
  - Drug ineffective [Not Recovered/Not Resolved]
  - Drug ineffective [Not Recovered/Not Resolved]
